FAERS Safety Report 25893260 (Version 1)
Quarter: 2025Q4

REPORT INFORMATION
  Report Type: Spontaneous
  Country: CA (occurrence: CA)
  Receive Date: 20251008
  Receipt Date: 20251008
  Transmission Date: 20260117
  Serious: Yes (Hospitalization, Other)
  Sender: CELLTRION
  Company Number: CA-CELLTRION INC.-2025CA035551

PATIENT

DRUGS (10)
  1. INFLIXIMAB [Suspect]
     Active Substance: INFLIXIMAB
     Indication: Ankylosing spondylitis
     Dosage: 700.0 MILLIGRAM
     Route: 042
  2. INFLIXIMAB [Suspect]
     Active Substance: INFLIXIMAB
     Dosage: 600.0 MILLIGRAM
     Route: 042
  3. INFLIXIMAB [Suspect]
     Active Substance: INFLIXIMAB
     Dosage: 600.0 MILLIGRAM
     Route: 042
  4. INFLIXIMAB [Suspect]
     Active Substance: INFLIXIMAB
     Dosage: 700.0 MILLIGRAM
     Route: 042
  5. CEFIXIME [Concomitant]
     Active Substance: CEFIXIME
     Dosage: 1.0 DOSAGE FORMS
  6. CELEBREX [Concomitant]
     Active Substance: CELECOXIB
     Dosage: 1.0 DOSAGE FORMS
  7. GLUCOPHAGE [Concomitant]
     Active Substance: METFORMIN HYDROCHLORIDE
     Dosage: 1.0 DOSAGE FORMS
  8. PANTOPRAZOLE SODIUM [Concomitant]
     Active Substance: PANTOPRAZOLE SODIUM
     Dosage: 1.0 DOSAGE FORMS
  9. TYLENOL [Concomitant]
     Active Substance: ACETAMINOPHEN
     Dosage: 1.0 DOSAGE FORM
  10. CHOLECALCIFEROL [Concomitant]
     Active Substance: CHOLECALCIFEROL
     Dosage: 1.0 DOSAGE FORMS

REACTIONS (7)
  - Acidosis [Not Recovered/Not Resolved]
  - Burning sensation [Not Recovered/Not Resolved]
  - Diabetes mellitus [Not Recovered/Not Resolved]
  - Occipital neuralgia [Not Recovered/Not Resolved]
  - Blindness [Not Recovered/Not Resolved]
  - Erythema [Not Recovered/Not Resolved]
  - Hypertension [Not Recovered/Not Resolved]
